FAERS Safety Report 17948961 (Version 2)
Quarter: 2020Q3

REPORT INFORMATION
  Report Type: Spontaneous
  Country: US (occurrence: US)
  Receive Date: 20200626
  Receipt Date: 20200707
  Transmission Date: 20201103
  Serious: No
  Sender: FDA-Public Use
  Company Number: US-KYOWAKIRIN-2020BKK010526

PATIENT

DRUGS (1)
  1. SANCUSO [Suspect]
     Active Substance: GRANISETRON
     Indication: PROPHYLAXIS OF NAUSEA AND VOMITING
     Dosage: APPLY THE DAY BEFORE CHEMO AND LEAVE ON FOR 7 DAYS, TO UPPER RIGHT ARM
     Route: 062
     Dates: start: 2020

REACTIONS (5)
  - Product adhesion issue [Not Recovered/Not Resolved]
  - Malaise [Unknown]
  - Wrong technique in product usage process [Not Recovered/Not Resolved]
  - Nausea [Not Recovered/Not Resolved]
  - Impaired reasoning [Unknown]

NARRATIVE: CASE EVENT DATE: 202006
